FAERS Safety Report 8418633-4 (Version None)
Quarter: 2012Q2

REPORT INFORMATION
  Report Type: 
  Country: None (occurrence: None)
  Receive Date: 20120607
  Receipt Date: 20120530
  Transmission Date: 20120825
  Serious: No
  Sender: FDA-Public Use
  Company Number: US-ASTRAZENECA-2011SE41537

PATIENT
  Age: 55 Year
  Sex: Female

DRUGS (8)
  1. NEXIUM [Suspect]
     Indication: GASTROOESOPHAGEAL REFLUX DISEASE
     Dosage: ONCE PER DAY
     Route: 048
     Dates: start: 20010101, end: 20110101
  2. SINGULAIR [Concomitant]
  3. PREVACID [Concomitant]
     Dates: start: 20010101
  4. PRILOSEC [Concomitant]
  5. GABAPENTIN [Concomitant]
     Indication: ANALGESIC THERAPY
  6. LEVROXYL [Concomitant]
  7. ALENDRONATE [Concomitant]
     Indication: OSTEOPOROSIS
  8. ZANTAC [Concomitant]

REACTIONS (10)
  - FALL [None]
  - EMOTIONAL DISTRESS [None]
  - ANXIETY [None]
  - PAIN [None]
  - MULTIPLE FRACTURES [None]
  - BONE DISORDER [None]
  - DEPRESSION [None]
  - OSTEOPOROSIS [None]
  - BONE DENSITY DECREASED [None]
  - FIBROMYALGIA [None]
